FAERS Safety Report 6713894-1 (Version None)
Quarter: 2010Q2

REPORT INFORMATION
  Report Type: 
  Country: None (occurrence: None)
  Receive Date: 20100506
  Receipt Date: 20100426
  Transmission Date: 20101027
  Serious: Yes (Other)
  Sender: FDA-Public Use
  Company Number: US-PFIZER INC-2006087906

PATIENT
  Sex: Female
  Weight: 95 kg

DRUGS (10)
  1. PROVERA [Suspect]
     Indication: HORMONE REPLACEMENT THERAPY
     Dosage: UNK
     Route: 048
     Dates: start: 19910921, end: 20001130
  2. MEDROXYPROGESTERONE ACETATE [Suspect]
     Indication: HORMONE REPLACEMENT THERAPY
     Dosage: UNK
  3. PREMARIN [Suspect]
     Indication: HORMONE REPLACEMENT THERAPY
     Dosage: 0.625 MG, UNK
     Route: 065
     Dates: start: 19910921, end: 20001130
  4. MEDROXYPROGESTERONE [Suspect]
     Indication: HORMONE REPLACEMENT THERAPY
     Dosage: 2.5 MG, UNK
     Dates: start: 19931121
  5. DIGOXIN [Concomitant]
     Indication: HYPERTENSION
     Dosage: UNK
     Dates: start: 19780101, end: 20060426
  6. MINIPRESS [Concomitant]
     Indication: HYPERTENSION
     Dosage: UNK
     Dates: start: 19780101, end: 20060426
  7. DIOVAN [Concomitant]
     Indication: HYPERTENSION
     Dosage: UNK
     Dates: start: 19970101, end: 20060426
  8. K-DUR [Concomitant]
     Indication: HYPERTENSION
     Dosage: UNK
     Dates: start: 19780101, end: 20060426
  9. DIAZEPAM [Concomitant]
     Indication: FEELING OF RELAXATION
     Dosage: UNK
     Dates: start: 19760101, end: 20060201
  10. ALLEGRA [Concomitant]
     Indication: HYPERSENSITIVITY
     Dosage: UNK
     Dates: start: 19950101, end: 20060426

REACTIONS (1)
  - BREAST CANCER FEMALE [None]
